FAERS Safety Report 19810230 (Version 2)
Quarter: 2021Q4

REPORT INFORMATION
  Report Type: Spontaneous
  Country: AR (occurrence: AR)
  Receive Date: 20210908
  Receipt Date: 20211018
  Transmission Date: 20220303
  Serious: Yes (Other)
  Sender: FDA-Public Use
  Company Number: AR-PFIZER INC-2021385825

PATIENT
  Age: 64 Year
  Sex: Female

DRUGS (1)
  1. ENBREL [Suspect]
     Active Substance: ETANERCEPT
     Indication: Rheumatoid arthritis
     Dosage: 25 MG (1 DOSE EVERY 10 DAYS)
     Route: 065
     Dates: start: 20070808

REACTIONS (9)
  - Off label use [Unknown]
  - Sacral pain [Unknown]
  - Bone fissure [Unknown]
  - Inflammation [Unknown]
  - Oropharyngeal pain [Unknown]
  - Ear pain [Unknown]
  - Neoplasm malignant [Not Recovered/Not Resolved]
  - Pain [Not Recovered/Not Resolved]
  - Intentional product misuse [Unknown]

NARRATIVE: CASE EVENT DATE: 20070808
